FAERS Safety Report 21782503 (Version 3)
Quarter: 2023Q1

REPORT INFORMATION
  Report Type: Spontaneous
  Country: BE (occurrence: None)
  Receive Date: 20221227
  Receipt Date: 20230317
  Transmission Date: 20230418
  Serious: Yes (Other)
  Sender: FDA-Public Use
  Company Number: BE-Merck Healthcare KGaA-9373898

PATIENT
  Age: 54 Year
  Sex: Female

DRUGS (5)
  1. TEPOTINIB [Suspect]
     Active Substance: TEPOTINIB
     Indication: Lung adenocarcinoma
     Dates: start: 20221005, end: 20221019
  2. TEPOTINIB [Suspect]
     Active Substance: TEPOTINIB
     Dates: start: 20221021
  3. OSIMERTINIB [Concomitant]
     Active Substance: OSIMERTINIB
     Indication: Lung adenocarcinoma
     Dates: start: 201809
  4. KEPPRA [Concomitant]
     Active Substance: LEVETIRACETAM
     Indication: Product used for unknown indication
  5. ESCITALOPRAM OXALATE [Concomitant]
     Active Substance: ESCITALOPRAM OXALATE
     Indication: Product used for unknown indication

REACTIONS (2)
  - Renal failure [Not Recovered/Not Resolved]
  - Hypotension [Not Recovered/Not Resolved]
